FAERS Safety Report 5200965-4 (Version None)
Quarter: 2007Q1

REPORT INFORMATION
  Report Type: 
  Country: None (occurrence: None)
  Receive Date: 20070103
  Receipt Date: 20061219
  Transmission Date: 20070707
  Serious: Yes (Life-Threatening, Hospitalization, Other)
  Sender: FDA-Public Use
  Company Number: PAR_1176_2006

PATIENT
  Age: 50 Year
  Sex: Male
  Weight: 85 kg

DRUGS (3)
  1. PROPRANOLOL [Suspect]
     Dosage: 1600 MG ONCE PO
     Route: 048
  2. HYDROCHLORIC ACID [Suspect]
     Dosage: 150 ML ONCE PO
     Route: 048
  3. OXAZEPAM [Concomitant]

REACTIONS (8)
  - BRADYCARDIA [None]
  - CARDIAC ARREST [None]
  - GENERAL PHYSICAL HEALTH DETERIORATION [None]
  - HYPOTENSION [None]
  - HYPOVOLAEMIA [None]
  - INTENTIONAL OVERDOSE [None]
  - METABOLIC ACIDOSIS [None]
  - SUICIDE ATTEMPT [None]
